FAERS Safety Report 18151118 (Version 4)
Quarter: 2020Q4

REPORT INFORMATION
  Report Type: Spontaneous
  Country: US (occurrence: US)
  Receive Date: 20200814
  Receipt Date: 20201126
  Transmission Date: 20210113
  Serious: No
  Sender: FDA-Public Use
  Company Number: US-PFIZER INC-2020314779

PATIENT
  Age: 72 Year
  Sex: Female

DRUGS (1)
  1. XELJANZ [Suspect]
     Active Substance: TOFACITINIB CITRATE
     Indication: RHEUMATOID ARTHRITIS
     Dosage: 5 MG, 1X/DAY
     Route: 048
     Dates: start: 202006

REACTIONS (12)
  - Skin lesion [Not Recovered/Not Resolved]
  - Malaise [Unknown]
  - Dermatitis acneiform [Not Recovered/Not Resolved]
  - Pain [Not Recovered/Not Resolved]
  - Breast pain [Unknown]
  - Arthralgia [Unknown]
  - Myalgia [Unknown]
  - Trigger finger [Unknown]
  - Back pain [Unknown]
  - Fluid retention [Unknown]
  - Pain in extremity [Unknown]
  - Liver disorder [Unknown]

NARRATIVE: CASE EVENT DATE: 2020
